FAERS Safety Report 5803745-1 (Version None)
Quarter: 2008Q3

REPORT INFORMATION
  Report Type: 
  Country: None (occurrence: None)
  Receive Date: 20080708
  Receipt Date: 20080225
  Transmission Date: 20090109
  Serious: No
  Sender: FDA-Public Use
  Company Number: US-AMGEN-KDL267043

PATIENT
  Sex: Female

DRUGS (2)
  1. KINERET [Suspect]
     Indication: JUVENILE ARTHRITIS
     Route: 058
     Dates: start: 20080224
  2. METHOTREXATE [Concomitant]
     Route: 048
     Dates: start: 20050101

REACTIONS (1)
  - INJECTION SITE HAEMORRHAGE [None]
